FAERS Safety Report 23787356 (Version 2)
Quarter: 2024Q2

REPORT INFORMATION
  Report Type: Spontaneous
  Country: US (occurrence: US)
  Receive Date: 20240426
  Receipt Date: 20240509
  Transmission Date: 20240715
  Serious: Yes (Other)
  Sender: FDA-Public Use
  Company Number: US-AMGEN-USASP2024080602

PATIENT
  Age: 80 Year
  Sex: Female

DRUGS (27)
  1. REPATHA [Suspect]
     Active Substance: EVOLOCUMAB
     Indication: Product used for unknown indication
     Dosage: 420 MILLIGRAM PER MILLILITRE, QMO
     Route: 058
     Dates: start: 20240215
  2. REPATHA [Suspect]
     Active Substance: EVOLOCUMAB
     Dosage: 420 MILLIGRAM PER 3.5 MILLILITRE, QMO
     Route: 058
     Dates: end: 20240416
  3. REPATHA [Suspect]
     Active Substance: EVOLOCUMAB
     Dosage: UNK
     Route: 065
     Dates: start: 2024
  4. TYLENOL [Concomitant]
     Active Substance: ACETAMINOPHEN
     Indication: Pain
     Dosage: UNK UNK, TID (300-30 MG PER TABLET/1 TABLEY BY MOUTH THREE TIMES PER DAY IF NEEDED)
     Route: 048
     Dates: start: 20230801
  5. VENTOLIN HFA [Concomitant]
     Active Substance: ALBUTEROL SULFATE
     Dosage: UNK (90 MCG/ACTUATION INHALER) (INHALE 2 PUFFS EVERY 6 HOURS AS NEEDED)
     Dates: start: 20210201
  6. ASPIRIN [Concomitant]
     Active Substance: ASPIRIN
     Dosage: 81 MILLIGRAM, QD
     Route: 048
  7. ASTELIN [Concomitant]
     Active Substance: AZELASTINE HYDROCHLORIDE
     Dosage: UNK UNK, BID (137 MCG (0.1 %) NASAL SPRAY) (ADMINISTER 1 SPRAY INTO EACH NOSTRIL 2 (TWO) TIMES PER D
     Route: 045
     Dates: start: 20231012
  8. CYANOCOBALAMIN [Concomitant]
     Active Substance: CYANOCOBALAMIN
     Dosage: 1000 MICROGRAM
     Route: 048
  9. TRUSOPT [Concomitant]
     Active Substance: DORZOLAMIDE HYDROCHLORIDE
     Dosage: UNK (2 % OPHTHALMIC SOLUTION) (ADMINISTER INTO BOTH EYES)
     Route: 065
  10. EPIPEN [Concomitant]
     Active Substance: EPINEPHRINE
     Dosage: 0.3 MILLILITER, QD (0-3 MG/0-3 ML INJECTION SYRINGE) (INJECT 0_3ML INTO THE SHOULDER, THIGH, OR BUTT
     Dates: start: 20211222
  11. ZETIA [Concomitant]
     Active Substance: EZETIMIBE
     Dosage: 10 MILLIGRAM (TAKE 1 TABLET (10 MG TOTAL) BY MOUTH EVERY 48 HOURS)
     Route: 048
  12. PEPCID [Concomitant]
     Active Substance: FAMOTIDINE
     Dosage: 40 MILLIGRAM, QD (TAKE 1 TABLET (40 MG TOTAL) BY MOUTH IN THE MORNING)
     Route: 048
  13. FERROUS SULFATE [Concomitant]
     Active Substance: FERROUS SULFATE
     Dosage: 1 DOSAGE FORM, QD (IRON, FERROUS SULFATE, 325 MG (65 MG IRON) TABLET)
     Route: 048
     Dates: start: 20220516
  14. NEURONTIN [Concomitant]
     Active Substance: GABAPENTIN
     Dosage: 300 MILLIGRAM, TID
     Route: 048
     Dates: start: 20220706
  15. ATARAX [Concomitant]
     Active Substance: HYDROXYZINE HYDROCHLORIDE
     Dosage: 25 MILLIGRAM, TID
     Route: 048
  16. VASCEPA [Concomitant]
     Active Substance: ICOSAPENT ETHYL
     Dosage: UNK (1 GRAM CAPSULE)
     Route: 048
     Dates: start: 20230831
  17. XALATAN [Concomitant]
     Active Substance: LATANOPROST
     Dosage: UNK (0.005 % OPHTHALMIC SOLUTIOIN)
     Dates: start: 20210825
  18. XYZAL [Concomitant]
     Active Substance: LEVOCETIRIZINE DIHYDROCHLORIDE
     Dosage: 5 MILLIGRAM
     Route: 048
     Dates: start: 20240214
  19. EMLA [Concomitant]
     Active Substance: LIDOCAINE\PRILOCAINE
     Dosage: UNK UNK, BID
     Route: 061
     Dates: start: 20220304
  20. LOPRESSOR [Concomitant]
     Active Substance: METOPROLOL TARTRATE
     Dosage: 12.5 MILLIGRAM, BID
     Route: 048
     Dates: start: 20240215, end: 2024
  21. PROTONIX [Concomitant]
     Active Substance: PANTOPRAZOLE SODIUM
     Dosage: 40 MILLIGRAM, BID
     Route: 048
     Dates: start: 20230731
  22. PHENERGAN [Concomitant]
     Active Substance: PROMETHAZINE HYDROCHLORIDE
     Indication: Nausea
     Dosage: 1 DOSAGE FORM, QD (12.5 MG TABLET)
     Route: 048
     Dates: start: 20230822
  23. ZANAFLEX [Concomitant]
     Active Substance: TIZANIDINE HYDROCHLORIDE
     Dosage: 2 MILLIGRAM, QD
     Route: 048
     Dates: start: 20231031
  24. ULTRAM [Concomitant]
     Active Substance: TRAMADOL HYDROCHLORIDE
     Indication: Pain
     Dosage: 50 MILLIGRAM, TID
     Route: 048
     Dates: start: 20231101
  25. PLAVIX [Concomitant]
     Active Substance: CLOPIDOGREL BISULFATE
     Dosage: 75 MILLIGRAM, QD
  26. DEFINITY [Concomitant]
     Active Substance: PERFLUTREN
     Dosage: 6.259 MILLIGRAM  (FREQUENCY: ONCE)
     Route: 042
     Dates: start: 20240301
  27. DEFINITY [Concomitant]
     Active Substance: PERFLUTREN
     Dosage: 0.958 MILLILITER (FREQUENCY: ONCE)
     Route: 042

REACTIONS (7)
  - Atrial fibrillation [Unknown]
  - Blood cholesterol increased [Unknown]
  - Ecchymosis [Unknown]
  - Body mass index increased [Unknown]
  - Product preparation error [Unknown]
  - Drug dose omission by device [Unknown]
  - Device difficult to use [Unknown]

NARRATIVE: CASE EVENT DATE: 20240301
